FAERS Safety Report 26185529 (Version 1)
Quarter: 2025Q4

REPORT INFORMATION
  Report Type: Spontaneous
  Country: CA (occurrence: None)
  Receive Date: 20251222
  Receipt Date: 20251222
  Transmission Date: 20260118
  Serious: Yes (Hospitalization, Other)
  Sender: AUROBINDO
  Company Number: CA-AUROBINDO-AUR-APL-2025-066255

PATIENT
  Age: 29 Year
  Weight: 91 kg

DRUGS (2)
  1. VANCOMYCIN [Suspect]
     Active Substance: VANCOMYCIN
     Indication: Meningitis bacterial
     Dosage: UNK
  2. REMICADE [Suspect]
     Active Substance: INFLIXIMAB
     Indication: Crohn^s disease
     Dosage: 600 MILLIGRAM,1 EVERY 8 WEEK

REACTIONS (3)
  - Meningitis bacterial [Recovering/Resolving]
  - Infection [Recovering/Resolving]
  - Rash [Recovering/Resolving]
